FAERS Safety Report 9965567 (Version 1)
Quarter: 2014Q1

REPORT INFORMATION
  Report Type: Report from Study
  Country: US (occurrence: US)
  Receive Date: 20140305
  Receipt Date: 20140305
  Transmission Date: 20141002
  Serious: No
  Sender: FDA-Public Use
  Company Number: US-ABBVIE-13P-163-1125609-00

PATIENT
  Age: 66 Year
  Sex: Female
  Weight: 56.3 kg

DRUGS (13)
  1. HUMIRA [Suspect]
     Indication: CROHN^S DISEASE
     Dates: start: 20130710, end: 20130710
  2. HUMIRA [Suspect]
     Dates: start: 20130724, end: 20130724
  3. HUMIRA [Suspect]
     Dates: start: 20130807
  4. IMITREX [Concomitant]
     Indication: MIGRAINE
  5. PRAVASTATIN [Concomitant]
     Indication: BLOOD CHOLESTEROL INCREASED
  6. CELEXA [Concomitant]
     Indication: ANXIETY
  7. CELEXA [Concomitant]
     Indication: DEPRESSION
  8. TRAZODONE [Concomitant]
     Indication: PAIN
  9. TRAZODONE [Concomitant]
     Indication: INSOMNIA
  10. MOBIC [Concomitant]
     Indication: OSTEOARTHRITIS
  11. NEURONTIN [Concomitant]
     Indication: FACIAL NEURALGIA
  12. NEURONTIN [Concomitant]
     Indication: TIC
  13. STATIN DRUG [Concomitant]
     Indication: BLOOD CHOLESTEROL

REACTIONS (5)
  - Incorrect dose administered [Not Recovered/Not Resolved]
  - Abdominal distension [Recovered/Resolved]
  - Abdominal pain [Recovered/Resolved]
  - Vomiting [Recovering/Resolving]
  - Faeces soft [Recovering/Resolving]
